FAERS Safety Report 13009329 (Version 2)
Quarter: 2016Q4

REPORT INFORMATION
  Report Type: Spontaneous
  Country: CA (occurrence: CA)
  Receive Date: 20161208
  Receipt Date: 20161220
  Transmission Date: 20170207
  Serious: Yes (Other)
  Sender: FDA-Public Use
  Company Number: CA-VERTEX PHARMACEUTICALS-2016-006756

PATIENT
  Age: 38 Year
  Sex: Female
  Weight: 48 kg

DRUGS (23)
  1. MULTIVITAMINS [Concomitant]
     Active Substance: VITAMINS
     Dosage: 2 CAPS ONCE DAILY
     Route: 048
  2. VENTOLIN [Concomitant]
     Active Substance: ALBUTEROL SULFATE
     Dosage: 2.5 MG, BID
     Route: 055
  3. FOLIC ACID. [Concomitant]
     Active Substance: FOLIC ACID
     Dosage: 5 MG, ONCE DAILY
     Route: 048
  4. OXEZE [Concomitant]
     Dosage: 2 PUFFS, BID
     Route: 055
  5. COLYTE [Concomitant]
     Active Substance: POLYETHYLENE GLYCOL 3350\POTASSIUM CHLORIDE\SODIUM BICARBONATE\SODIUM CHLORIDE\SODIUM SULFATE ANHYDROUS
     Dosage: 1- 2 CUPS QH5 PRN
     Route: 048
  6. FERROUS GLUCONATE [Concomitant]
     Active Substance: FERROUS GLUCONATE
  7. TRANEXAMIC ACID GEL [Concomitant]
  8. VITAMIN K [Concomitant]
     Active Substance: PHYTONADIONE
     Dosage: 5MG DAILY
  9. CREON [Concomitant]
     Active Substance: PANCRELIPASE AMYLASE\PANCRELIPASE LIPASE\PANCRELIPASE PROTEASE
     Dosage: 4-5/MEALS AND 3/SNACKS
     Route: 048
  10. CAYSTON [Concomitant]
     Active Substance: AZTREONAM
     Dosage: 75 MG TID X 14 DAYS ON/OFF
     Route: 055
  11. ORKAMBI [Suspect]
     Active Substance: IVACAFTOR\LUMACAFTOR
     Indication: CYSTIC FIBROSIS
     Dosage: 200-125 MG, BID
     Route: 048
     Dates: start: 201611
  12. TUMS [Concomitant]
     Active Substance: CALCIUM CARBONATE
  13. WELLBUTRIN [Concomitant]
     Active Substance: BUPROPION HYDROCHLORIDE
  14. MIDAZOLAM [Concomitant]
     Active Substance: MIDAZOLAM\MIDAZOLAM HYDROCHLORIDE
  15. AZITHROMYCIN ANHYDROUS. [Concomitant]
     Active Substance: AZITHROMYCIN ANHYDROUS
     Dosage: 500 MG DAILY ON MON, WED, FRI
     Route: 048
  16. RESOTRAN [Concomitant]
     Active Substance: PRUCALOPRIDE SUCCINATE
     Dosage: 1 MG QAM
     Route: 048
  17. TRANEXAMIC ACID. [Concomitant]
     Active Substance: TRANEXAMIC ACID
  18. OXYCODONE [Concomitant]
     Active Substance: OXYCODONE
     Dosage: 5MG, 1.2 X DAILY PRN
  19. RAMIPRIL. [Concomitant]
     Active Substance: RAMIPRIL
  20. TRAZODONE [Concomitant]
     Active Substance: TRAZODONE HYDROCHLORIDE
  21. TARGIN [Concomitant]
     Active Substance: NALOXONE HYDROCHLORIDE\OXYCODONE HYDROCHLORIDE
  22. PERCOCET [Concomitant]
     Active Substance: ACETAMINOPHEN\OXYCODONE HYDROCHLORIDE
     Dosage: 1 TAB DAILY ONCE DAILY PRN
  23. NACL [Concomitant]
     Active Substance: SODIUM CHLORIDE
     Dosage: 4 ML, BID
     Route: 055

REACTIONS (1)
  - Platelet count decreased [Recovered/Resolved]

NARRATIVE: CASE EVENT DATE: 20161109
